FAERS Safety Report 20719284 (Version 1)
Quarter: 2022Q2

REPORT INFORMATION
  Report Type: Spontaneous
  Country: US (occurrence: US)
  Receive Date: 20220418
  Receipt Date: 20220418
  Transmission Date: 20220721
  Serious: Yes (Hospitalization, Other)
  Sender: FDA-Public Use
  Company Number: US-BAYER-2022A052302

PATIENT
  Age: 22 Year
  Sex: Female

DRUGS (1)
  1. KYLEENA [Suspect]
     Active Substance: LEVONORGESTREL
     Dosage: 17.5?G/DAY
     Route: 015
     Dates: start: 201907, end: 20210105

REACTIONS (8)
  - Ectopic pregnancy with contraceptive device [None]
  - Abdominal pain lower [Recovering/Resolving]
  - Genital haemorrhage [Recovering/Resolving]
  - Device ineffective [None]
  - Depression [None]
  - Anxiety [None]
  - Uterine pain [Not Recovered/Not Resolved]
  - Uterine scar [None]

NARRATIVE: CASE EVENT DATE: 20201226
